FAERS Safety Report 22528709 (Version 3)
Quarter: 2025Q1

REPORT INFORMATION
  Report Type: Spontaneous
  Country: US (occurrence: US)
  Receive Date: 20230607
  Receipt Date: 20250116
  Transmission Date: 20250409
  Serious: No
  Sender: LUPIN
  Company Number: US-LUPIN PHARMACEUTICALS INC.-2023-04370

PATIENT

DRUGS (2)
  1. ALBUTEROL SULFATE [Suspect]
     Active Substance: ALBUTEROL SULFATE
     Indication: Asthma
     Dosage: UNK, QD 6 TO 8 PUFFS A DAY.
     Dates: start: 202304
  2. ALBUTEROL SULFATE [Suspect]
     Active Substance: ALBUTEROL SULFATE
     Dosage: UNK, QD 6 TO 8 PUFFS A DAY.
     Dates: start: 202304

REACTIONS (4)
  - Wrong technique in device usage process [Unknown]
  - Device deposit issue [Unknown]
  - Device delivery system issue [Unknown]
  - No adverse event [Unknown]
